FAERS Safety Report 24867497 (Version 1)
Quarter: 2025Q1

REPORT INFORMATION
  Report Type: Spontaneous
  Country: US (occurrence: None)
  Receive Date: 20250120
  Receipt Date: 20250120
  Transmission Date: 20250408
  Serious: Yes (Other)
  Sender: FDA-CTU
  Company Number: None

PATIENT
  Age: 66 Year
  Sex: Female

DRUGS (1)
  1. XDEMVY [Suspect]
     Active Substance: LOTILANER
     Indication: Demodex blepharitis
     Dosage: FREQUENCY : TWICE A DAY;?
     Route: 047
     Dates: end: 20241217

REACTIONS (5)
  - Headache [None]
  - Eye swelling [None]
  - Erythema [None]
  - Dizziness [None]
  - Photophobia [None]

NARRATIVE: CASE EVENT DATE: 20241217
